FAERS Safety Report 7900619-7 (Version None)
Quarter: 2011Q4

REPORT INFORMATION
  Report Type: 
  Country: None (occurrence: None)
  Receive Date: 20111108
  Receipt Date: 20111028
  Transmission Date: 20120403
  Serious: Yes (Hospitalization, Other)
  Sender: FDA-Public Use
  Company Number: US-ASTRAZENECA-2010SE12069

PATIENT
  Age: 66 Year
  Sex: Male
  Weight: 72.6 kg

DRUGS (15)
  1. LOPRESSOR [Concomitant]
     Indication: HYPERTENSION
  2. LISINOPRIL [Concomitant]
     Indication: HYPERTENSION
     Route: 048
  3. ASPIRIN [Concomitant]
  4. ULTRAM [Concomitant]
     Indication: BACK PAIN
  5. PRAVASTATIN [Concomitant]
     Indication: BLOOD CHOLESTEROL INCREASED
     Dosage: HS
  6. SEROQUEL [Suspect]
     Indication: BIPOLAR DISORDER
     Route: 048
     Dates: start: 20090101
  7. PLAVIX [Concomitant]
     Indication: CAROTID ARTERY OCCLUSION
  8. ZOLOFT [Concomitant]
     Indication: DEPRESSION
  9. CYTALIPRAM [Concomitant]
  10. SEROQUEL [Suspect]
     Indication: SLEEP DISORDER
     Route: 048
     Dates: start: 20090101
  11. METHADONE HCL [Concomitant]
     Indication: PAIN
  12. PREDNIZONE [Concomitant]
     Indication: SLE ARTHRITIS
  13. FLOMAX [Concomitant]
     Indication: PROSTATIC DISORDER
     Dosage: HS
  14. LEVOTHYROXINE SODIUM [Concomitant]
     Indication: THYROID DISORDER
     Dosage: OD
  15. METFORMIN HCL [Concomitant]
     Indication: DIABETES MELLITUS

REACTIONS (6)
  - OFF LABEL USE [None]
  - FALL [None]
  - HIP FRACTURE [None]
  - ARTERIAL OCCLUSIVE DISEASE [None]
  - FEMUR FRACTURE [None]
  - DEHYDRATION [None]
